FAERS Safety Report 14492567 (Version 1)
Quarter: 2018Q1

REPORT INFORMATION
  Report Type: Spontaneous
  Country: JP (occurrence: JP)
  Receive Date: 20180206
  Receipt Date: 20180206
  Transmission Date: 20180509
  Serious: Yes (Life-Threatening, Hospitalization)
  Sender: FDA-Public Use
  Company Number: JP-BAYER-2017-146954

PATIENT
  Age: 81 Year
  Sex: Male
  Weight: 53.9 kg

DRUGS (2)
  1. STIVARGA [Suspect]
     Active Substance: REGORAFENIB
     Indication: HEPATOCELLULAR CARCINOMA
     Dosage: 80 MG, QD
     Route: 048
     Dates: start: 20170712, end: 20170718
  2. NEXAVAR [Suspect]
     Active Substance: SORAFENIB
     Indication: HEPATOCELLULAR CARCINOMA
     Dosage: DAILY DOSE 400MG
     Route: 048
     Dates: start: 201705

REACTIONS (5)
  - Hepatic function abnormal [Recovered/Resolved]
  - Asthenia [None]
  - Diarrhoea [None]
  - Malaise [Recovered/Resolved]
  - Fatigue [None]

NARRATIVE: CASE EVENT DATE: 20170718
